FAERS Safety Report 5007489-8 (Version None)
Quarter: 2006Q2

REPORT INFORMATION
  Report Type: 
  Country: None (occurrence: None)
  Receive Date: 20060517
  Receipt Date: 20060501
  Transmission Date: 20061013
  Serious: Yes (Other)
  Sender: FDA-Public Use
  Company Number: 193539

PATIENT
  Age: 51 Year
  Sex: Female
  Weight: 70.3075 kg

DRUGS (15)
  1. AVONEX [Suspect]
     Indication: MULTIPLE SCLEROSIS
     Dosage: SEE IMAGE
     Route: 030
     Dates: start: 19990101, end: 20010101
  2. AVONEX [Suspect]
     Indication: MULTIPLE SCLEROSIS
     Dosage: SEE IMAGE
     Route: 030
     Dates: start: 20010101, end: 20031201
  3. AVONEX [Suspect]
     Indication: MULTIPLE SCLEROSIS
     Dosage: SEE IMAGE
     Route: 030
     Dates: start: 20031201, end: 20040218
  4. ACTOS [Concomitant]
  5. ACIPHEX [Concomitant]
  6. ................. [Concomitant]
  7. LIPITOR [Concomitant]
  8. DURAGESIC-100 [Concomitant]
  9. MS CONTIN [Concomitant]
  10. ESTRATEST [Concomitant]
  11. MORPHINE [Concomitant]
  12. AMITRIPTYLINE HCL [Concomitant]
  13. ALLOPURINOL [Concomitant]
  14. PERCOCET [Concomitant]
  15. PHENERGAN HCL [Concomitant]

REACTIONS (4)
  - BREAST CANCER FEMALE [None]
  - INSOMNIA [None]
  - OESTROGEN RECEPTOR ASSAY POSITIVE [None]
  - PROGESTERONE RECEPTOR ASSAY POSITIVE [None]
